FAERS Safety Report 10503663 (Version 1)
Quarter: 2014Q4

REPORT INFORMATION
  Report Type: Spontaneous
  Country: US (occurrence: None)
  Receive Date: 20141007
  Receipt Date: 20141007
  Transmission Date: 20150528
  Serious: Yes (Hospitalization)
  Sender: FDA-Public Use
  Company Number: None

PATIENT
  Age: 66 Year
  Sex: Male
  Weight: 102.2 kg

DRUGS (1)
  1. ATORVASTATIN [Suspect]
     Active Substance: ATORVASTATIN
     Indication: HYPERLIPIDAEMIA
     Route: 048
     Dates: start: 20130125, end: 20130322

REACTIONS (5)
  - Myalgia [None]
  - Acute kidney injury [None]
  - Hepatic enzyme increased [None]
  - Confusional state [None]
  - Rhabdomyolysis [None]

NARRATIVE: CASE EVENT DATE: 20130323
